FAERS Safety Report 9197396 (Version 19)
Quarter: 2015Q4

REPORT INFORMATION
  Report Type: Spontaneous
  Country: US (occurrence: US)
  Receive Date: 20130328
  Receipt Date: 20151015
  Transmission Date: 20160305
  Serious: Yes (Hospitalization, Other)
  Sender: FDA-Public Use
  Company Number: US-GLAXOSMITHKLINE-A1017602A

PATIENT
  Age: 65 Year
  Sex: Female

DRUGS (13)
  1. FLOLAN [Suspect]
     Active Substance: EPOPROSTENOL SODIUM
     Dosage: 17 NG/KG/M CONTINUOUSLY, CONCENTRATION: 45,000 NG/ML, VIAL STRENGTH: 1.5 MG, PUMP RATE: 50 ML/DAY
     Route: 042
     Dates: start: 19991223
  2. FLOLAN [Suspect]
     Active Substance: EPOPROSTENOL SODIUM
     Dosage: 17 NG/KG/MIN CONTINUOUSLY
  3. FLOLAN [Suspect]
     Active Substance: EPOPROSTENOL SODIUM
     Dosage: 17 NG/KG/MIN CONTINUOUSLY
  4. PREDNISONE. [Suspect]
     Active Substance: PREDNISONE
     Indication: PRODUCT USED FOR UNKNOWN INDICATION
     Dosage: UNK, U
     Route: 065
  5. LETAIRIS [Suspect]
     Active Substance: AMBRISENTAN
  6. FLOLAN [Suspect]
     Active Substance: EPOPROSTENOL SODIUM
     Dosage: 17 NG/KG/MIN CONTINUOUSLY
  7. FLOLAN [Suspect]
     Active Substance: EPOPROSTENOL SODIUM
     Indication: PULMONARY ARTERIAL HYPERTENSION
     Dosage: 17 NG/KG/MIN CONTINUOUSLY17 NG/KG/MIN CONTINUOUSLY, CONCENTRATION: 45,000 NG/ML, 50 ML PER DAY [...]
     Route: 042
     Dates: start: 19991022
  8. FLOLAN [Suspect]
     Active Substance: EPOPROSTENOL SODIUM
     Dosage: 17 NG/KG/MG CO CONCENTRATION: 45,000 NG/ML, VIAL STRENGTH: 1.5 MG, PUMP RATE: 50 ML/DAY
     Route: 042
  9. INTRAVENOUS IMMUNOGLOBULIN [Suspect]
     Active Substance: HUMAN IMMUNOGLOBULIN G
     Indication: PRODUCT USED FOR UNKNOWN INDICATION
     Dosage: UNK, U
     Route: 042
  10. FLOLAN [Suspect]
     Active Substance: EPOPROSTENOL SODIUM
     Dosage: 17 NG/KG/MIN CONTINUOUSLY
  11. FLOLAN [Suspect]
     Active Substance: EPOPROSTENOL SODIUM
     Dosage: 17 NG/KG/M CONTINUOUSLY, CONCENTRATION: 45,000 NG/ML, VIAL STRENGTH: 1.5 MG, PUMP RATE: 50 ML/DAY
     Route: 042
  12. FLOLAN [Suspect]
     Active Substance: EPOPROSTENOL SODIUM
     Dosage: 17 NG/KG/MIN (CONCENTRATION 45,000 NG/ML, PUMP RATE 50 ML/DAY, VIAL STRENGTH 1.5 MG), CO
     Route: 042
  13. FLOLAN [Suspect]
     Active Substance: EPOPROSTENOL SODIUM
     Dosage: 17 NG/KG/M CONTINUOUSLY, CONCENTRATION: 45,000 NG/ML, VIAL STRENGTH: 1.5 MG, PUMP RATE: 50 ML/DAY
     Dates: start: 20070131

REACTIONS (29)
  - Haemoglobin decreased [Recovered/Resolved]
  - Device infusion issue [Recovered/Resolved]
  - Emergency care examination [Recovered/Resolved]
  - Nervousness [Recovered/Resolved]
  - Drug hypersensitivity [Unknown]
  - Back pain [Unknown]
  - Headache [Unknown]
  - Platelet count decreased [Recovered/Resolved]
  - Chest discomfort [Recovered/Resolved]
  - Gastric disorder [Unknown]
  - Bone disorder [Not Recovered/Not Resolved]
  - Catheter site haemorrhage [Unknown]
  - Hospitalisation [Recovered/Resolved]
  - Device related infection [Unknown]
  - Central venous catheterisation [Recovered/Resolved]
  - Dyspnoea [Recovered/Resolved]
  - Pain in extremity [Unknown]
  - Transfusion [Recovered/Resolved]
  - Gastric polypectomy [Recovered/Resolved]
  - Myelofibrosis [Recovered/Resolved]
  - Anaemia [Recovered/Resolved]
  - Suture insertion [Recovered/Resolved]
  - Drug administration error [Recovered/Resolved]
  - Haemorrhage [Recovered/Resolved]
  - Pneumonia [Unknown]
  - Atrial fibrillation [Unknown]
  - Central venous catheter removal [Recovered/Resolved]
  - Chest pain [Recovered/Resolved]
  - Bronchitis [Not Recovered/Not Resolved]

NARRATIVE: CASE EVENT DATE: 20130318
